FAERS Safety Report 13999630 (Version 1)
Quarter: 2017Q3

REPORT INFORMATION
  Report Type: Spontaneous
  Country: US (occurrence: US)
  Receive Date: 20170922
  Receipt Date: 20170922
  Transmission Date: 20171128
  Serious: Yes (Hospitalization, Other)
  Sender: FDA-Public Use
  Company Number: US-MACLEODS PHARMACEUTICALS US LTD-MAC2017005954

PATIENT

DRUGS (2)
  1. DONEPEZIL 5MG TABLET [Suspect]
     Active Substance: DONEPEZIL
     Indication: PRODUCT USED FOR UNKNOWN INDICATION
     Dosage: 7 DF, SINGLE (INGESTION OF 35 MG (7 DOSES OF HIS DAILY 5MG TABLETS))
     Route: 048
  2. DONEPEZIL 5MG TABLET [Suspect]
     Active Substance: DONEPEZIL
     Dosage: 5 MG, QD
     Route: 048

REACTIONS (11)
  - Accidental overdose [Unknown]
  - Vomiting [Unknown]
  - Fatigue [Unknown]
  - Hyperhidrosis [Unknown]
  - Diarrhoea [Unknown]
  - Nausea [Unknown]
  - Confusional state [Unknown]
  - Miosis [Unknown]
  - Bradycardia [Recovered/Resolved]
  - Electrocardiogram QT prolonged [Recovered/Resolved]
  - Salivary hypersecretion [Unknown]
